FAERS Safety Report 6533930-5 (Version None)
Quarter: 2010Q1

REPORT INFORMATION
  Report Type: 
  Country: None (occurrence: None)
  Receive Date: 20100111
  Receipt Date: 20091228
  Transmission Date: 20100710
  Serious: Yes (Other)
  Sender: FDA-Public Use
  Company Number: AT-MYLANLABS-2009S1021992

PATIENT
  Age: 63 Year
  Sex: Male
  Weight: 105 kg

DRUGS (8)
  1. CISPLATIN [Interacting]
     Indication: URETHRAL CANCER
     Route: 065
  2. LISINOPRIL AND HYDROCHLOROTHIAZIDE [Interacting]
     Dosage: 1-0-0
     Route: 048
  3. METFORMIN HYDROCHLORIDE [Suspect]
     Dosage: 0-0-1
     Route: 048
  4. PARACETAMOL [Interacting]
     Dosage: 1-1-1
     Route: 048
  5. GEMCITABINE [Concomitant]
     Indication: URETHRAL CANCER
     Route: 065
  6. ESOMEPRAZOLE SODIUM (NEXIUM) [Concomitant]
     Dosage: 1-0-1
     Route: 048
  7. PIPERACILLIN W/TAZOBACTAM          /01606301/ [Concomitant]
     Indication: URINARY TRACT INFECTION
     Route: 065
  8. LINEZOLID [Concomitant]
     Indication: URINARY TRACT INFECTION
     Route: 065

REACTIONS (2)
  - DRUG INTERACTION [None]
  - RENAL IMPAIRMENT [None]
